FAERS Safety Report 18960087 (Version 4)
Quarter: 2021Q1

REPORT INFORMATION
  Report Type: Report from Study
  Country: US (occurrence: US)
  Receive Date: 20210302
  Receipt Date: 20210319
  Transmission Date: 20210420
  Serious: No
  Sender: FDA-Public Use
  Company Number: NVSC2021US048454

PATIENT
  Sex: Female

DRUGS (1)
  1. ENTRESTO [Suspect]
     Active Substance: SACUBITRIL\VALSARTAN
     Indication: MYOCARDIAL INFARCTION
     Dosage: UNK UNK, BID
     Route: 048

REACTIONS (6)
  - Weight decreased [Recovering/Resolving]
  - Blood pressure decreased [Recovering/Resolving]
  - Gastroenteritis viral [Recovered/Resolved]
  - Blood glucose increased [Unknown]
  - Product use in unapproved indication [Unknown]
  - Product dose omission issue [Recovered/Resolved]
